FAERS Safety Report 5208774-7 (Version None)
Quarter: 2007Q1

REPORT INFORMATION
  Report Type: 
  Country: None (occurrence: None)
  Receive Date: 20070111
  Receipt Date: 20070111
  Transmission Date: 20070707
  Serious: Yes (Other)
  Sender: FDA-Public Use
  Company Number: None

PATIENT
  Age: 30 Year
  Sex: Female
  Weight: 58.9676 kg

DRUGS (5)
  1. LEVAQUIN [Suspect]
     Indication: SINUSITIS
     Dosage: 1 TABLET DAILY PO; 1 DOSE
     Route: 048
  2. PROTONIX [Concomitant]
  3. ESTROSTEP [Concomitant]
  4. YASMIN [Concomitant]
  5. IBUPROFEN [Concomitant]

REACTIONS (5)
  - DYSPNOEA [None]
  - INSOMNIA [None]
  - PALPITATIONS [None]
  - RESTLESSNESS [None]
  - TINNITUS [None]
